FAERS Safety Report 14973563 (Version 2)
Quarter: 2018Q2

REPORT INFORMATION
  Report Type: Report from Study
  Country: IL (occurrence: IL)
  Receive Date: 20180605
  Receipt Date: 20180608
  Transmission Date: 20180711
  Serious: Yes (Hospitalization, Other)
  Sender: FDA-Public Use
  Company Number: IL-IPSEN BIOPHARMACEUTICALS, INC.-2018-08049

PATIENT
  Age: 76 Year
  Sex: Female

DRUGS (23)
  1. AEROVENT [Concomitant]
     Dates: end: 2018
  2. CARDILOC [Concomitant]
     Active Substance: BISOPROLOL FUMARATE
     Dates: end: 2018
  3. GLUCOPHAGE [Concomitant]
     Active Substance: METFORMIN HYDROCHLORIDE
     Dates: end: 2018
  4. NOVORAPID [Concomitant]
     Active Substance: INSULIN ASPART
     Dosage: IF USED BY PEN, THREE TIMES PER DAY
     Route: 058
     Dates: start: 20180503
  5. LIPITOR [Concomitant]
     Active Substance: ATORVASTATIN CALCIUM
     Dates: end: 2018
  6. LIPITOR [Concomitant]
     Active Substance: ATORVASTATIN CALCIUM
     Route: 048
     Dates: start: 20180504
  7. TRITACE [Concomitant]
     Active Substance: RAMIPRIL
     Dates: end: 2018
  8. SOMATULINE AUTOGEL 60MG [Suspect]
     Active Substance: LANREOTIDE ACETATE
     Indication: ACROMEGALY
     Dosage: 60 MG
     Route: 065
     Dates: start: 20000723
  9. APIXABAN [Concomitant]
     Active Substance: APIXABAN
     Dates: end: 2018
  10. NOVORAPID [Concomitant]
     Active Substance: INSULIN ASPART
     Dosage: MAX DOSAGE 7 IU
     Route: 058
     Dates: start: 20180503
  11. ASPIRIN. [Concomitant]
     Active Substance: ASPIRIN
  12. AEROVENT [Concomitant]
     Route: 055
     Dates: start: 20180506
  13. CARDILOC [Concomitant]
     Active Substance: BISOPROLOL FUMARATE
     Route: 048
     Dates: start: 20180506
  14. EUTHYROX [Concomitant]
     Active Substance: LEVOTHYROXINE SODIUM
     Dates: end: 2018
  15. EUTHYROX [Concomitant]
     Active Substance: LEVOTHYROXINE SODIUM
     Route: 048
     Dates: start: 20180506
  16. GLUCOPHAGE [Concomitant]
     Active Substance: METFORMIN HYDROCHLORIDE
     Route: 048
     Dates: start: 20180509
  17. NOVORAPID [Concomitant]
     Active Substance: INSULIN ASPART
     Dates: end: 2018
  18. APIXABAN [Concomitant]
     Active Substance: APIXABAN
     Route: 048
     Dates: start: 20180509
  19. LANTUS [Concomitant]
     Active Substance: INSULIN GLARGINE
     Dates: end: 2018
  20. LANTUS [Concomitant]
     Active Substance: INSULIN GLARGINE
     Route: 058
     Dates: start: 20180505
  21. LOSEC [Concomitant]
     Active Substance: OMEPRAZOLE
     Dates: end: 2018
  22. LOSEC [Concomitant]
     Active Substance: OMEPRAZOLE
     Route: 048
     Dates: start: 20180506
  23. TRITACE [Concomitant]
     Active Substance: RAMIPRIL
     Route: 048
     Dates: start: 20180505

REACTIONS (3)
  - Cerebrovascular accident [Unknown]
  - Deep vein thrombosis [Unknown]
  - Atrial fibrillation [Unknown]

NARRATIVE: CASE EVENT DATE: 20180503
